FAERS Safety Report 17165080 (Version 1)
Quarter: 2019Q4

REPORT INFORMATION
  Report Type: Spontaneous
  Country: US (occurrence: US)
  Receive Date: 20191217
  Receipt Date: 20191217
  Transmission Date: 20200122
  Serious: No
  Sender: FDA-Public Use
  Company Number: NVSC2019US071198

PATIENT
  Age: 31 Year
  Sex: Female

DRUGS (3)
  1. FENTANYL. [Suspect]
     Active Substance: FENTANYL
     Indication: INDUCTION OF ANAESTHESIA
     Dosage: 1 U/KG
     Route: 065
  2. SUCCINYLCHOLINE CHLORIDE. [Suspect]
     Active Substance: SUCCINYLCHOLINE CHLORIDE
     Indication: INDUCTION OF ANAESTHESIA
     Dosage: 1 MG/KG
     Route: 065
  3. ETOMIDATE. [Suspect]
     Active Substance: ETOMIDATE
     Indication: INDUCTION OF ANAESTHESIA
     Dosage: 0.3 MG/KG
     Route: 042

REACTIONS (1)
  - Maternal exposure during pregnancy [Unknown]
